FAERS Safety Report 11036669 (Version 2)
Quarter: 2015Q2

REPORT INFORMATION
  Report Type: Spontaneous
  Country: SK (occurrence: SK)
  Receive Date: 20150416
  Receipt Date: 20150512
  Transmission Date: 20150821
  Serious: Yes (Death, Hospitalization)
  Sender: FDA-Public Use
  Company Number: SK-ROCHE-1564787

PATIENT
  Sex: Male

DRUGS (12)
  1. XOLAIR [Suspect]
     Active Substance: OMALIZUMAB
     Indication: ASTHMA
     Route: 065
     Dates: start: 201304
  2. CORDARONE [Concomitant]
     Active Substance: AMIODARONE HYDROCHLORIDE
  3. SYMBICORT [Concomitant]
     Active Substance: BUDESONIDE\FORMOTEROL FUMARATE DIHYDRATE
  4. HELICID [Concomitant]
  5. FURON [Concomitant]
     Active Substance: FUROSEMIDE
  6. DEPAKINE CHRONO [Concomitant]
     Active Substance: VALPROATE SODIUM
  7. SOLMUCOL [Concomitant]
  8. BERODUAL [Concomitant]
     Active Substance: FENOTEROL HYDROBROMIDE\IPRATROPIUM BROMIDE
  9. NIFUROXAZIDE [Concomitant]
     Active Substance: NIFUROXAZIDE
  10. THEOPHYLLINE [Concomitant]
     Active Substance: THEOPHYLLINE ANHYDROUS
  11. CIPHIN [Concomitant]
     Active Substance: BENZYL ALCOHOL\CIPROFLOXACIN HYDROCHLORIDE\HYDROCORTISONE
  12. HYDROCORTISONE. [Concomitant]
     Active Substance: HYDROCORTISONE

REACTIONS (5)
  - Arrhythmia [Fatal]
  - Hypoxia [Fatal]
  - Respiratory failure [Fatal]
  - Epilepsy [Fatal]
  - Asthma [Fatal]
